FAERS Safety Report 17486203 (Version 2)
Quarter: 2020Q3

REPORT INFORMATION
  Report Type: Other
  Country: US (occurrence: US)
  Receive Date: 20200303
  Receipt Date: 20200729
  Transmission Date: 20201102
  Serious: Yes (Other)
  Sender: FDA-Public Use
  Company Number: US-ROCHE-2554002

PATIENT
  Sex: Male

DRUGS (2)
  1. ACTEMRA [Suspect]
     Active Substance: TOCILIZUMAB
     Indication: PULMONARY HYPERTENSION
  2. ACTEMRA [Suspect]
     Active Substance: TOCILIZUMAB
     Indication: TOXIC GOITRE
     Route: 058

REACTIONS (5)
  - Eye swelling [Unknown]
  - Off label use [Unknown]
  - Product use in unapproved indication [Unknown]
  - Endocrine ophthalmopathy [Unknown]
  - Hypertension [Unknown]
